FAERS Safety Report 7658286-6 (Version None)
Quarter: 2011Q3

REPORT INFORMATION
  Report Type: 
  Country: None (occurrence: None)
  Receive Date: 20110802
  Receipt Date: 20110721
  Transmission Date: 20111222
  Serious: Yes (Other)
  Sender: FDA-Public Use
  Company Number: 2011AP001274

PATIENT
  Age: 44 Year
  Sex: Male

DRUGS (6)
  1. IRON (IRON) [Concomitant]
  2. RISPERIDONE [Suspect]
     Indication: PRODUCT USED FOR UNKNOWN INDICATION
  3. CLOZARIL [Suspect]
     Indication: SCHIZOPHRENIA
     Dosage: 400 MG; QD; PO
     Route: 048
     Dates: start: 20100809, end: 20110520
  4. SCOPOLAMINE [Suspect]
     Indication: IRRITABLE BOWEL SYNDROME
     Dosage: 10 MG; PO
     Route: 048
  5. SERTRALINE HYDROCHLORIDE [Concomitant]
  6. HYOSCINE HBR HYT [Concomitant]

REACTIONS (3)
  - WHITE BLOOD CELL COUNT DECREASED [None]
  - SEASONAL ALLERGY [None]
  - NEUTROPENIA [None]
